FAERS Safety Report 14609634 (Version 1)
Quarter: 2018Q1

REPORT INFORMATION
  Report Type: Spontaneous
  Country: US (occurrence: US)
  Receive Date: 20180307
  Receipt Date: 20180307
  Transmission Date: 20180509
  Serious: No
  Sender: FDA-Public Use
  Company Number: US-ALLERGAN-1768026US

PATIENT
  Sex: Female

DRUGS (2)
  1. VIIBRYD [Suspect]
     Active Substance: VILAZODONE HYDROCHLORIDE
     Dosage: UNK
     Route: 065
     Dates: start: 2013
  2. VIIBRYD [Suspect]
     Active Substance: VILAZODONE HYDROCHLORIDE
     Indication: MAJOR DEPRESSION
     Dosage: 40 MG, QD
     Route: 065

REACTIONS (3)
  - Epistaxis [Unknown]
  - Drug dispensing error [Unknown]
  - Dizziness [Unknown]
